FAERS Safety Report 8283620-6 (Version None)
Quarter: 2012Q1

REPORT INFORMATION
  Report Type: 
  Country: None (occurrence: None)
  Receive Date: 20120316
  Receipt Date: 20100324
  Transmission Date: 20120608
  Serious: Yes (Other)
  Sender: FDA-Public Use
  Company Number: PHEH2010US03305

PATIENT
  Sex: Male

DRUGS (2)
  1. LISINOPRIL [Suspect]
  2. TEKTURNA [Suspect]
     Indication: HYPERTENSION
     Dates: start: 20100201, end: 20100301

REACTIONS (2)
  - CONCOMITANT DISEASE AGGRAVATED [None]
  - HYPERKALAEMIA [None]
